FAERS Safety Report 17005886 (Version 2)
Quarter: 2019Q4

REPORT INFORMATION
  Report Type: Report from Study
  Country: US (occurrence: US)
  Receive Date: 20191107
  Receipt Date: 20191112
  Transmission Date: 20200122
  Serious: Yes (Hospitalization)
  Sender: FDA-Public Use
  Company Number: US-EISAI MEDICAL RESEARCH-EC-2017-027196

PATIENT
  Age: 61 Year
  Sex: Female
  Weight: 123.37 kg

DRUGS (28)
  1. LENVIMA [Suspect]
     Active Substance: LENVATINIB
     Route: 048
     Dates: end: 2019
  2. SYNTHROID [Concomitant]
     Active Substance: LEVOTHYROXINE SODIUM
  3. AMITRIPTYLINE [Concomitant]
     Active Substance: AMITRIPTYLINE
  4. DULOXETINE. [Concomitant]
     Active Substance: DULOXETINE
  5. ATORVASTATIN [Concomitant]
     Active Substance: ATORVASTATIN
  6. LATANOPROST. [Concomitant]
     Active Substance: LATANOPROST
  7. TRAMADOL. [Concomitant]
     Active Substance: TRAMADOL
  8. LISINOPRIL. [Concomitant]
     Active Substance: LISINOPRIL
  9. LEVOTHYROXINE. [Concomitant]
     Active Substance: LEVOTHYROXINE
  10. LENVIMA [Suspect]
     Active Substance: LENVATINIB
     Indication: THYROID CANCER
     Route: 048
     Dates: start: 20170414, end: 2017
  11. LENVIMA [Suspect]
     Active Substance: LENVATINIB
     Indication: BONE NEOPLASM
     Route: 048
     Dates: start: 2017, end: 2017
  12. METFORMIN [Concomitant]
     Active Substance: METFORMIN HYDROCHLORIDE
  13. AMLODIPINE AND ATORVASTATIN [Concomitant]
     Active Substance: AMLODIPINE BESYLATE\ATORVASTATIN CALCIUM
  14. PERCOCET [Concomitant]
     Active Substance: ACETAMINOPHEN\OXYCODONE HYDROCHLORIDE
  15. LENVIMA [Suspect]
     Active Substance: LENVATINIB
     Route: 048
     Dates: end: 2018
  16. VERAPAMIL [Concomitant]
     Active Substance: VERAPAMIL HYDROCHLORIDE
  17. KLOR-CON [Concomitant]
     Active Substance: POTASSIUM CHLORIDE
  18. ONDANSETRON [Concomitant]
     Active Substance: ONDANSETRON
  19. LABETALOL [Concomitant]
     Active Substance: LABETALOL\LABETALOL HYDROCHLORIDE
  20. LENVIMA [Suspect]
     Active Substance: LENVATINIB
     Indication: LUNG NEOPLASM
     Route: 048
     Dates: start: 2017, end: 2017
  21. LENVIMA [Suspect]
     Active Substance: LENVATINIB
     Route: 048
     Dates: start: 2017, end: 2017
  22. IRON [Concomitant]
     Active Substance: IRON
  23. PRILOSEC [Concomitant]
     Active Substance: OMEPRAZOLE MAGNESIUM
  24. OXYCODONE - ACETAMINOPHEN [Concomitant]
     Active Substance: ACETAMINOPHEN\OXYCODONE HYDROCHLORIDE
  25. LENVIMA [Suspect]
     Active Substance: LENVATINIB
     Route: 048
     Dates: start: 2017
  26. TRIAMTERENE AND HYDROCHLOROTHIAZIDE [Concomitant]
     Active Substance: HYDROCHLOROTHIAZIDE\TRIAMTERENE
  27. LENVIMA [Suspect]
     Active Substance: LENVATINIB
     Route: 048
     Dates: start: 2019
  28. OMEPRAZOLE. [Concomitant]
     Active Substance: OMEPRAZOLE

REACTIONS (35)
  - Back pain [Unknown]
  - Arthritis [Unknown]
  - Taste disorder [Unknown]
  - Muscle tightness [Unknown]
  - Diarrhoea [Not Recovered/Not Resolved]
  - Dyspnoea [Not Recovered/Not Resolved]
  - Arthralgia [Unknown]
  - Gallbladder disorder [Unknown]
  - Blood pressure increased [Not Recovered/Not Resolved]
  - Postmenopausal haemorrhage [Unknown]
  - Hallucination [Not Recovered/Not Resolved]
  - Lip swelling [Not Recovered/Not Resolved]
  - Gastritis [Unknown]
  - Decreased appetite [Unknown]
  - Food craving [Unknown]
  - Peripheral swelling [Recovering/Resolving]
  - Skin irritation [Recovering/Resolving]
  - Dry mouth [Unknown]
  - Chest pain [Not Recovered/Not Resolved]
  - Stomatitis [Not Recovered/Not Resolved]
  - Blister [Recovering/Resolving]
  - Lip dry [Unknown]
  - Dehydration [Unknown]
  - Abdominal pain upper [Not Recovered/Not Resolved]
  - Blood pressure fluctuation [Not Recovered/Not Resolved]
  - Myalgia [Unknown]
  - Gait disturbance [Recovering/Resolving]
  - Insomnia [Unknown]
  - Ligament rupture [Not Recovered/Not Resolved]
  - Irritable bowel syndrome [Unknown]
  - Depression [Unknown]
  - Diabetes mellitus [Unknown]
  - Pain [Unknown]
  - Hyperkeratosis [Unknown]
  - Rash [Unknown]

NARRATIVE: CASE EVENT DATE: 2017
